FAERS Safety Report 5326213-2 (Version None)
Quarter: 2007Q2

REPORT INFORMATION
  Report Type: 
  Country: None (occurrence: None)
  Receive Date: 20070509
  Receipt Date: 20070424
  Transmission Date: 20071010
  Serious: Yes (Hospitalization)
  Sender: FDA-Public Use
  Company Number: B0469086A

PATIENT
  Weight: 4.8 kg

DRUGS (3)
  1. CEFUROXIME SODIUM [Suspect]
     Indication: PREMATURE RUPTURE OF MEMBRANES
     Dosage: TRANSPLACENTARY
     Route: 064
  2. MERCAPTAMINE BITARTRATE (FORMULATION UNKNOWN) (MERCAPTAMINE BITARTRATE [Suspect]
     Indication: CYSTINOSIS
     Dosage: 300 MG; THREE TIMES PER DAY; TRANS
     Route: 064
  3. METRONIDAZOLE [Suspect]
     Indication: PREMATURE RUPTURE OF MEMBRANES
     Dosage: TRANSPLACENTARY
     Route: 064

REACTIONS (3)
  - DRUG EXPOSURE DURING PREGNANCY [None]
  - PREMATURE BABY [None]
  - RESPIRATORY DISORDER NEONATAL [None]
